FAERS Safety Report 7364215-5 (Version None)
Quarter: 2011Q1

REPORT INFORMATION
  Report Type: 
  Country: None (occurrence: None)
  Receive Date: 20110316
  Receipt Date: 20110316
  Transmission Date: 20110831
  Serious: Yes (Hospitalization)
  Sender: FDA-Public Use
  Company Number: None

PATIENT
  Age: 72 Year
  Sex: Female

DRUGS (3)
  1. PRADAXA [Suspect]
     Indication: ATRIAL FIBRILLATION
     Dosage: 150MG ORAL
     Route: 048
     Dates: start: 20110127, end: 20110202
  2. PRADAXA [Suspect]
     Indication: TRANSIENT ISCHAEMIC ATTACK
     Dosage: 150MG ORAL
     Route: 048
     Dates: start: 20110127, end: 20110202
  3. PRADAXA [Suspect]
     Indication: PROPHYLAXIS
     Dosage: 150MG ORAL
     Route: 048
     Dates: start: 20110127, end: 20110202

REACTIONS (4)
  - DIARRHOEA [None]
  - ASTHENIA [None]
  - DIZZINESS [None]
  - RECTAL HAEMORRHAGE [None]
